FAERS Safety Report 4534780-1 (Version None)
Quarter: 2004Q4

REPORT INFORMATION
  Report Type: 
  Country: None (occurrence: None)
  Receive Date: 20041222
  Receipt Date: 20040303
  Transmission Date: 20050328
  Serious: No
  Sender: FDA-Public Use
  Company Number: US-BRISTOL-MYERS SQUIBB COMPANY-12523254

PATIENT
  Age: 76 Year
  Sex: Female
  Weight: 54 kg

DRUGS (6)
  1. PRAVACHOL [Suspect]
     Indication: BLOOD CHOLESTEROL
     Route: 048
  2. FOSAMAX [Concomitant]
  3. NORVASC [Concomitant]
     Dosage: ^RECENTLY DISCONTINUED^
  4. HYTRIN [Concomitant]
  5. THERAGRAN-M ADVANCED [Concomitant]
  6. ASPIRIN [Concomitant]

REACTIONS (1)
  - ALOPECIA [None]
